FAERS Safety Report 13198037 (Version 1)
Quarter: 2017Q1

REPORT INFORMATION
  Report Type: Spontaneous
  Country: US (occurrence: US)
  Receive Date: 20170208
  Receipt Date: 20170208
  Transmission Date: 20170428
  Serious: No
  Sender: FDA-Public Use
  Company Number: US-PERRIGO-16US020116

PATIENT
  Age: 64 Year
  Sex: Female
  Weight: 81.63 kg

DRUGS (1)
  1. IBUPROFEN AND DIPHENHYDRAMINE CITRATE [Suspect]
     Active Substance: DIPHENHYDRAMINE CITRATE\IBUPROFEN
     Indication: INSOMNIA
     Dosage: TWO TABLETS, SINGLE
     Route: 048
     Dates: start: 20160913, end: 20160913

REACTIONS (7)
  - Oral discomfort [Not Recovered/Not Resolved]
  - Headache [Not Recovered/Not Resolved]
  - Energy increased [Not Recovered/Not Resolved]
  - Off label use [Recovered/Resolved]
  - Drug effect delayed [Recovered/Resolved]
  - Fatigue [Not Recovered/Not Resolved]
  - Muscle spasms [Not Recovered/Not Resolved]

NARRATIVE: CASE EVENT DATE: 20160913
